FAERS Safety Report 6786634-8 (Version None)
Quarter: 2010Q2

REPORT INFORMATION
  Report Type: 
  Country: None (occurrence: None)
  Receive Date: 20100623
  Receipt Date: 20100620
  Transmission Date: 20101027
  Serious: Yes (Hospitalization)
  Sender: FDA-Public Use
  Company Number: US-BRISTOL-MYERS SQUIBB COMPANY-15137540

PATIENT
  Age: 81 Year
  Sex: Female

DRUGS (7)
  1. CARBOPLATIN [Suspect]
     Indication: SMALL CELL LUNG CANCER EXTENSIVE STAGE
     Dosage: LAST DOSE: 24MAY10
     Dates: start: 20100412
  2. ABRAXANE [Suspect]
     Indication: SMALL CELL LUNG CANCER EXTENSIVE STAGE
     Dosage: LAST DOSE: 24MAY10
     Dates: start: 20100412
  3. ASPIRIN [Concomitant]
     Indication: PROPHYLAXIS
     Route: 048
     Dates: start: 20090101
  4. CLOPIDOGREL BISULFATE [Concomitant]
     Indication: PERIPHERAL VASCULAR DISORDER
     Route: 048
     Dates: start: 20090101
  5. NEBIVOLOL HCL [Concomitant]
     Indication: HYPERTENSION
     Route: 048
     Dates: start: 20090101
  6. SIMVASTATIN [Concomitant]
     Indication: CORONARY ARTERY DISEASE
     Route: 048
     Dates: start: 20090101
  7. OLMESARTAN MEDOXOMIL [Concomitant]
     Indication: HYPERTENSION
     Route: 048
     Dates: start: 20090101

REACTIONS (2)
  - NEUTROPENIA [None]
  - SYNCOPE [None]
